FAERS Safety Report 12963618 (Version 2)
Quarter: 2016Q4

REPORT INFORMATION
  Report Type: Spontaneous
  Country: JP (occurrence: JP)
  Receive Date: 20161122
  Receipt Date: 20161212
  Transmission Date: 20170207
  Serious: No
  Sender: FDA-Public Use
  Company Number: JP-009507513-1611JPN008909

PATIENT
  Age: 71 Year
  Sex: Male

DRUGS (5)
  1. MENESIT TABLETS - 100 [Suspect]
     Active Substance: CARBIDOPA\LEVODOPA
     Indication: PARKINSONISM
     Dosage: 50 MG, TID (THREE TIME A DAY)
     Route: 048
     Dates: start: 2015
  2. FP (SELEGILINE HYDROCHLORIDE) [Suspect]
     Active Substance: SELEGILINE HYDROCHLORIDE
     Indication: PARKINSONISM
     Dosage: 2.5 MG, QD (ONCE DAILY)
     Route: 048
  3. MENESIT TABLETS - 100 [Suspect]
     Active Substance: CARBIDOPA\LEVODOPA
     Dosage: 50 MG, BID (TAKEN IN TWO DOSES)
     Route: 048
  4. MENESIT TABLETS - 100 [Suspect]
     Active Substance: CARBIDOPA\LEVODOPA
     Dosage: 50 MG, TID
     Route: 048
  5. MENESIT TABLETS - 100 [Suspect]
     Active Substance: CARBIDOPA\LEVODOPA
     Dosage: 200 MG, UNK (ALSO REPORTED AS 200 MG/DAY, TAKEN IN THREE DOSES)
     Route: 048

REACTIONS (4)
  - Movement disorder [Recovering/Resolving]
  - Dyskinesia [Recovered/Resolved]
  - Asthenia [Unknown]
  - Gait disturbance [Recovered/Resolved]
